FAERS Safety Report 8487373-8 (Version None)
Quarter: 2012Q3

REPORT INFORMATION
  Report Type: 
  Country: None (occurrence: None)
  Receive Date: 20120705
  Receipt Date: 20120625
  Transmission Date: 20120928
  Serious: Yes (Death)
  Sender: FDA-Public Use
  Company Number: US-ELI_LILLY_AND_COMPANY-US201206008199

PATIENT
  Sex: Female

DRUGS (2)
  1. ZYPREXA [Suspect]
     Dosage: 10 MG, EACH EVENING
  2. ZYPREXA [Suspect]
     Dosage: 5 MG, EACH MORNING

REACTIONS (1)
  - DEATH [None]
